FAERS Safety Report 8034255-1 (Version None)
Quarter: 2012Q1

REPORT INFORMATION
  Report Type: 
  Country: None (occurrence: None)
  Receive Date: 20120110
  Receipt Date: 20120105
  Transmission Date: 20120608
  Serious: Yes (Other)
  Sender: FDA-Public Use
  Company Number: PHHY2012BR000866

PATIENT
  Sex: Female

DRUGS (7)
  1. MOTILIUM [Concomitant]
     Indication: DYSPHAGIA
  2. SINGULAIR [Concomitant]
     Indication: BRONCHITIS
     Dosage: 10MG, 1 TABLET AT NIGHT
     Route: 048
  3. CRESTOR [Concomitant]
     Indication: SKIN DISORDER
     Dosage: 10 MG, HALF TABLET AT NIGHT
     Route: 048
  4. VENLAFAXINE HYDROCHLORIDE [Concomitant]
     Indication: ANXIETY
     Dosage: 75MG, 1 TABLET PER DAY
  5. AMIODARONE HCL [Concomitant]
     Indication: CARDIAC DISORDER
     Dosage: 2.5MG, 1 TABLET IN MORNING
     Route: 048
  6. EXELON [Suspect]
     Dosage: 6 MG, UNK
     Route: 048
  7. EXELON [Suspect]
     Dosage: 3 MG , 2 CAPSULES A DAY
     Route: 048

REACTIONS (2)
  - DIARRHOEA [None]
  - GASTROINTESTINAL INFECTION [None]
